FAERS Safety Report 4699822-1 (Version None)
Quarter: 2005Q2

REPORT INFORMATION
  Report Type: 
  Country: None (occurrence: None)
  Receive Date: 20050623
  Receipt Date: 20050614
  Transmission Date: 20051028
  Serious: Yes (Hospitalization)
  Sender: FDA-Public Use
  Company Number: 2005088983

PATIENT
  Age: 33 Year
  Sex: Female

DRUGS (3)
  1. ZYVOX [Suspect]
     Indication: STAPHYLOCOCCAL INFECTION
     Dosage: 1200 MG (600 MG, 1 IN 12 HR),ORAL
     Route: 048
     Dates: start: 20050419, end: 20050523
  2. ZANTAC [Concomitant]
  3. TOPAMAX [Concomitant]

REACTIONS (1)
  - PANCREATITIS [None]
